FAERS Safety Report 22390281 (Version 1)
Quarter: 2023Q2

REPORT INFORMATION
  Report Type: Spontaneous
  Country: SK (occurrence: SK)
  Receive Date: 20230531
  Receipt Date: 20230531
  Transmission Date: 20230721
  Serious: Yes (Hospitalization)
  Sender: FDA-Public Use
  Company Number: None

PATIENT
  Age: 77 Year
  Sex: Male
  Weight: 69 kg

DRUGS (2)
  1. GADOBUTROL [Suspect]
     Active Substance: GADOBUTROL
     Dosage: 1 DF, ONCE
  2. BISEPTOL [Suspect]
     Active Substance: SULFAMETHOXAZOLE\TRIMETHOPRIM
     Dosage: 2 DF
     Dates: start: 20230320, end: 20230327

REACTIONS (2)
  - Toxic skin eruption [Recovered/Resolved]
  - Dermatitis exfoliative generalised [Recovered/Resolved]
